FAERS Safety Report 9363510 (Version 1)
Quarter: 2013Q2

REPORT INFORMATION
  Report Type: Report from Study
  Country: CA (occurrence: CA)
  Receive Date: 20130624
  Receipt Date: 20130624
  Transmission Date: 20140414
  Serious: Yes (Other)
  Sender: FDA-Public Use
  Company Number: CA-JNJFOC-20130610153

PATIENT
  Age: 52 Year
  Sex: Female
  Weight: 71 kg

DRUGS (4)
  1. REMICADE [Suspect]
     Indication: CROHN^S DISEASE
     Route: 042
     Dates: start: 20110207
  2. METHOTREXATE [Concomitant]
     Route: 065
  3. FOLATE [Concomitant]
     Route: 065
  4. VITAMIN D [Concomitant]
     Route: 065

REACTIONS (3)
  - Uterine dilation and curettage [Recovered/Resolved]
  - Genital labial operation [Recovered/Resolved]
  - Intra-uterine contraceptive device removal [Recovered/Resolved]
